FAERS Safety Report 11170573 (Version 2)
Quarter: 2015Q4

REPORT INFORMATION
  Report Type: Report from Study
  Country: BE (occurrence: BE)
  Receive Date: 20150608
  Receipt Date: 20151210
  Transmission Date: 20160304
  Serious: Yes (Other)
  Sender: FDA-Public Use
  Company Number: BE-AMGEN-BELNI2015054047

PATIENT
  Age: 59 Year
  Sex: Female

DRUGS (4)
  1. XGEVA [Suspect]
     Active Substance: DENOSUMAB
     Indication: METASTASES TO BONE
     Dosage: 120 MG, Q4WK
     Route: 058
     Dates: start: 20130723
  2. AFINITOR [Concomitant]
     Active Substance: EVEROLIMUS
     Indication: METASTASES TO BONE
     Dosage: UNK
     Dates: start: 20130508
  3. DENOSUMAB [Suspect]
     Active Substance: DENOSUMAB
     Indication: METASTASES TO BONE
     Dosage: UNK
     Route: 065
  4. AROMASIN [Concomitant]
     Active Substance: EXEMESTANE
     Indication: METASTASES TO BONE
     Dosage: UNK
     Dates: start: 20130508

REACTIONS (1)
  - Osteonecrosis of jaw [Not Recovered/Not Resolved]

NARRATIVE: CASE EVENT DATE: 20150421
